FAERS Safety Report 13405296 (Version 1)
Quarter: 2017Q2

REPORT INFORMATION
  Report Type: Spontaneous
  Country: FR (occurrence: FR)
  Receive Date: 20170405
  Receipt Date: 20170405
  Transmission Date: 20170830
  Serious: Yes (Hospitalization)
  Sender: FDA-Public Use
  Company Number: FR-GLAXOSMITHKLINE-FR2017GSK047250

PATIENT
  Age: 32 Year
  Sex: Male

DRUGS (8)
  1. SYMBICORT [Suspect]
     Active Substance: BUDESONIDE\FORMOTEROL FUMARATE DIHYDRATE
     Indication: ASTHMA
     Route: 055
  2. ANAPEN (ADRENALINE) [Suspect]
     Active Substance: EPINEPHRINE
     Indication: ASTHMA
     Route: 058
  3. PROCORALAN [Suspect]
     Active Substance: IVABRADINE
     Indication: TACHYCARDIA
     Dosage: 5 MG, BID
     Route: 048
     Dates: start: 20170121
  4. VENTOLINE [Suspect]
     Active Substance: ALBUTEROL
     Indication: ASTHMA
     Route: 055
  5. ISOPTINE [Suspect]
     Active Substance: VERAPAMIL HYDROCHLORIDE
     Indication: TACHYCARDIA
     Dosage: 120 MG, BID
     Route: 048
     Dates: start: 20161230
  6. BRICANYL [Suspect]
     Active Substance: TERBUTALINE SULFATE
     Indication: ASTHMA
     Route: 055
  7. SINGULAIR [Suspect]
     Active Substance: MONTELUKAST SODIUM
     Indication: ASTHMA
     Dosage: UNK
     Route: 048
     Dates: start: 201701, end: 20170221
  8. SPIRIVA [Suspect]
     Active Substance: TIOTROPIUM BROMIDE MONOHYDRATE
     Indication: ASTHMA
     Route: 055

REACTIONS (16)
  - Tremor [None]
  - Motor dysfunction [None]
  - Haematoma [Not Recovered/Not Resolved]
  - Supraventricular extrasystoles [None]
  - Petechiae [None]
  - Headache [None]
  - Proteinuria [None]
  - Sinus tachycardia [Not Recovered/Not Resolved]
  - Drug use disorder [None]
  - Haematuria [None]
  - Hyperhidrosis [None]
  - Ear haemorrhage [None]
  - Deafness [None]
  - Condition aggravated [Not Recovered/Not Resolved]
  - Hypertension [Not Recovered/Not Resolved]
  - Overdose [None]

NARRATIVE: CASE EVENT DATE: 2016
